FAERS Safety Report 18444882 (Version 2)
Quarter: 2020Q4

REPORT INFORMATION
  Report Type: Report from Study
  Country: CA (occurrence: CA)
  Receive Date: 20201030
  Receipt Date: 20201119
  Transmission Date: 20210114
  Serious: Yes (Hospitalization, Other)
  Sender: FDA-Public Use
  Company Number: CA-SHIRE-CA202012983

PATIENT
  Age: 71 Year
  Sex: Male

DRUGS (19)
  1. NACL [Concomitant]
     Active Substance: SODIUM CHLORIDE
  2. OPTIFER [ASCORBIC ACID;FERROUS GLYCINE SULFATE;FOLIC ACID;IRON PENTACA [Concomitant]
  3. PEGLYTE [Concomitant]
     Active Substance: POLYETHYLENE GLYCOL 3350\POTASSIUM CHLORIDE\SODIUM BICARBONATE\SODIUM CHLORIDE\SODIUM SULFATE
  4. VITAMIN B [Concomitant]
     Active Substance: VITAMIN B
  5. TPN [AMINO ACIDS NOS;CARBOHYDRATES NOS;MINERALS NOS;VITAMINS NOS] [Concomitant]
     Active Substance: AMINO ACIDS\CARBOHYDRATES\MINERALS\VITAMINS
  6. VITAMIN B12 [Concomitant]
     Active Substance: CYANOCOBALAMIN
  7. VITAMIN D NOS [Concomitant]
     Active Substance: VITAMIN D NOS
  8. TEDUGLUTIDE [Suspect]
     Active Substance: TEDUGLUTIDE
     Indication: SHORT-BOWEL SYNDROME
     Dosage: 3.6 MILLIGRAM, 1X/DAY:QD
     Route: 058
     Dates: start: 20160216
  9. TEDUGLUTIDE [Suspect]
     Active Substance: TEDUGLUTIDE
     Indication: SHORT-BOWEL SYNDROME
     Dosage: 3.6 MILLIGRAM, 1X/DAY:QD
     Route: 058
     Dates: start: 20160216
  10. ELMIRON [Concomitant]
     Active Substance: PENTOSAN POLYSULFATE SODIUM
  11. PEG 3350 [Concomitant]
     Active Substance: POLYETHYLENE GLYCOL 3350
  12. RAPAFLO [Concomitant]
     Active Substance: SILODOSIN
  13. TEDUGLUTIDE [Suspect]
     Active Substance: TEDUGLUTIDE
     Indication: SHORT-BOWEL SYNDROME
     Dosage: 3.6 MILLIGRAM, 1X/DAY:QD
     Route: 058
     Dates: start: 20160216
  14. TEDUGLUTIDE [Suspect]
     Active Substance: TEDUGLUTIDE
     Indication: SHORT-BOWEL SYNDROME
     Dosage: 3.6 MILLIGRAM, 1X/DAY:QD
     Route: 058
     Dates: start: 20160216
  15. VITAMIN D [COLECALCIFEROL] [Concomitant]
     Active Substance: CHOLECALCIFEROL
  16. MAGNESIUM PIDOLATE [Concomitant]
     Active Substance: MAGNESIUM PIDOLATE
  17. PREVACID [Concomitant]
     Active Substance: LANSOPRAZOLE
  18. RESTOLAX [Concomitant]
  19. SANDOSTATIN [Concomitant]
     Active Substance: OCTREOTIDE ACETATE

REACTIONS (22)
  - Drug delivery system issue [Not Recovered/Not Resolved]
  - Hypoaesthesia [Not Recovered/Not Resolved]
  - Intervertebral disc protrusion [Not Recovered/Not Resolved]
  - Memory impairment [Unknown]
  - Pain in extremity [Not Recovered/Not Resolved]
  - Needle issue [Not Recovered/Not Resolved]
  - Prostatic pain [Recovering/Resolving]
  - Anxiety [Not Recovered/Not Resolved]
  - Device difficult to use [Unknown]
  - Incorrect dose administered [Not Recovered/Not Resolved]
  - Subdural haematoma [Recovering/Resolving]
  - Oropharyngeal pain [Unknown]
  - Limb discomfort [Not Recovered/Not Resolved]
  - Syringe issue [Not Recovered/Not Resolved]
  - Partial seizures [Recovered/Resolved]
  - Urine output decreased [Unknown]
  - Bladder pain [Not Recovered/Not Resolved]
  - Dysuria [Not Recovered/Not Resolved]
  - Product administration error [Not Recovered/Not Resolved]
  - Product complaint [Unknown]
  - Condition aggravated [Not Recovered/Not Resolved]
  - Arthralgia [Not Recovered/Not Resolved]

NARRATIVE: CASE EVENT DATE: 202004
